FAERS Safety Report 16003952 (Version 5)
Quarter: 2019Q2

REPORT INFORMATION
  Report Type: Spontaneous
  Country: DE (occurrence: DE)
  Receive Date: 20190225
  Receipt Date: 20190410
  Transmission Date: 20190711
  Serious: Yes (Other)
  Sender: FDA-Public Use
  Company Number: DE-GLENMARK PHARMACEUTICALS-2019GMK039723

PATIENT

DRUGS (1)
  1. RIZATRIPTAN GLENMARK 10 MG SCHMELZTABLETTEN [Suspect]
     Active Substance: RIZATRIPTAN BENZOATE
     Indication: MIGRAINE
     Dosage: 1 DF, SINGLE
     Route: 048
     Dates: start: 20190207, end: 20190207

REACTIONS (6)
  - Pharyngeal swelling [Recovering/Resolving]
  - Allergic reaction to excipient [Recovering/Resolving]
  - Swelling [Recovering/Resolving]
  - Product taste abnormal [Unknown]
  - Mouth swelling [Recovering/Resolving]
  - Product solubility abnormal [Unknown]

NARRATIVE: CASE EVENT DATE: 20190207
